FAERS Safety Report 7170203-4 (Version None)
Quarter: 2010Q4

REPORT INFORMATION
  Report Type: 
  Country: None (occurrence: None)
  Receive Date: 20101217
  Receipt Date: 20101216
  Transmission Date: 20110411
  Serious: No
  Sender: FDA-Public Use
  Company Number: US-PFIZER INC-2010173745

PATIENT
  Sex: Female

DRUGS (2)
  1. FLAGYL [Suspect]
     Dosage: UNK
     Dates: start: 20101101, end: 20101101
  2. VENOFER [Suspect]
     Indication: IRON DEFICIENCY ANAEMIA
     Dosage: 200MG IN 150 ML NS
     Route: 042
     Dates: start: 20101107, end: 20101109

REACTIONS (2)
  - EXTRAVASATION [None]
  - NAUSEA [None]
